FAERS Safety Report 11722523 (Version 3)
Quarter: 2016Q1

REPORT INFORMATION
  Report Type: Report from Study
  Country: BR (occurrence: BR)
  Receive Date: 20151111
  Receipt Date: 20160229
  Transmission Date: 20160525
  Serious: Yes (Other)
  Sender: FDA-Public Use
  Company Number: PHHY2015BR121828

PATIENT
  Sex: Female
  Weight: 61 kg

DRUGS (4)
  1. AFINITOR [Suspect]
     Active Substance: EVEROLIMUS
     Dosage: 10 MG, QW5 (FROM MONDAY TO FRIDAY)
     Route: 048
     Dates: end: 201601
  2. AROMASIN [Concomitant]
     Active Substance: EXEMESTANE
     Indication: BREAST CANCER
     Dosage: 1 DF, QD
     Route: 048
  3. FEMARA [Concomitant]
     Active Substance: LETROZOLE
     Indication: BREAST CANCER
     Dosage: 1 DF, QD
     Route: 048
  4. AFINITOR [Suspect]
     Active Substance: EVEROLIMUS
     Indication: BREAST CANCER
     Dosage: 10 MG, QD
     Route: 048
     Dates: start: 201509

REACTIONS (15)
  - Aphthous ulcer [Not Recovered/Not Resolved]
  - Speech disorder [Unknown]
  - Stomatitis [Unknown]
  - Acne [Not Recovered/Not Resolved]
  - Gingival swelling [Unknown]
  - Eating disorder [Unknown]
  - Pain [Unknown]
  - Erythema [Unknown]
  - Malaise [Unknown]
  - Skin exfoliation [Recovering/Resolving]
  - Scar [Unknown]
  - Pneumonitis [Unknown]
  - Tongue ulceration [Unknown]
  - Weight decreased [Unknown]
  - Drug ineffective [Unknown]
